FAERS Safety Report 21764109 (Version 2)
Quarter: 2022Q4

REPORT INFORMATION
  Report Type: Other
  Country: US (occurrence: None)
  Receive Date: 20221222
  Receipt Date: 20221226
  Transmission Date: 20230112
  Serious: Yes (Other)
  Sender: FDA-Public Use
  Company Number: US-ROCHE-3247045

PATIENT
  Age: 76 Year
  Sex: Male

DRUGS (1)
  1. RITUXAN [Suspect]
     Active Substance: RITUXIMAB
     Indication: Rheumatoid arthritis
     Dosage: VIAL- INFUSE 1000MG ON DAY(S) 1 AND DAY(S) 15 EVERY 150 DAY(S)
     Route: 041

REACTIONS (2)
  - Fall [Unknown]
  - Hip fracture [Unknown]
